FAERS Safety Report 9278436 (Version 2)
Quarter: 2013Q2

REPORT INFORMATION
  Report Type: Spontaneous
  Country: TR (occurrence: TR)
  Receive Date: 20130508
  Receipt Date: 20130524
  Transmission Date: 20140414
  Serious: Yes (Hospitalization)
  Sender: FDA-Public Use
  Company Number: TR-PFIZER INC-2013139685

PATIENT
  Age: 1 Year
  Sex: Male
  Weight: 9 kg

DRUGS (3)
  1. AMPICILLIN SODIUM/SULBACTAM SODIUM [Suspect]
     Indication: PNEUMONIA
     Dosage: 500 MG VIAL, EVERY 12 HOURS
     Route: 051
  2. AMIKACIN [Suspect]
     Indication: PNEUMONIA
     Dosage: 111.1 MG/KG/DAY ON FIRST DAY
     Route: 051
  3. AMIKACIN [Suspect]
     Dosage: 55.5 MG/KG/DAY ON SECOND DAY
     Route: 051

REACTIONS (2)
  - Drug dispensing error [Unknown]
  - Poisoning [Unknown]
